FAERS Safety Report 8423471 (Version 5)
Quarter: 2014Q1

REPORT INFORMATION
  Report Type: Report from Study
  Country: US (occurrence: US)
  Receive Date: 20120223
  Receipt Date: 20140327
  Transmission Date: 20141002
  Serious: Yes (Death, Hospitalization, Other)
  Sender: FDA-Public Use
  Company Number: PHEH2012US004272

PATIENT
  Age: 76 Year
  Sex: Female
  Weight: 48.5 kg

DRUGS (3)
  1. AFINITOR [Suspect]
     Indication: RENAL CANCER
     Dosage: 5/10 MG, ALTERNATE DAYS
     Route: 048
     Dates: start: 20120213
  2. CARBOPLATIN [Concomitant]
     Indication: LUNG NEOPLASM MALIGNANT
  3. TAXOL [Concomitant]
     Indication: LUNG NEOPLASM MALIGNANT

REACTIONS (6)
  - Atrial fibrillation [Fatal]
  - Oedema peripheral [Fatal]
  - Hypertension [Fatal]
  - Cardiac arrest [Fatal]
  - Metastatic neoplasm [Fatal]
  - Cardiac disorder [Unknown]
